FAERS Safety Report 5323946-9 (Version None)
Quarter: 2007Q2

REPORT INFORMATION
  Report Type: 
  Country: None (occurrence: None)
  Receive Date: 20070509
  Receipt Date: 20070509
  Transmission Date: 20071010
  Serious: Yes (Other)
  Sender: FDA-Public Use
  Company Number: None

PATIENT
  Sex: Female

DRUGS (2)
  1. FLEET GLYCERIN (ADULT) [Suspect]
     Dosage: 1 UNIT; ;RTL
     Route: 054
     Dates: start: 20070430, end: 20070501
  2. FLEET GLYCERIN (ADULT) [Suspect]
     Indication: ABDOMINAL PAIN
     Dosage: RTL
     Route: 054
     Dates: start: 20070501, end: 20070501

REACTIONS (2)
  - BACK PAIN [None]
  - PANCREATITIS [None]
